FAERS Safety Report 13105978 (Version 1)
Quarter: 2017Q1

REPORT INFORMATION
  Report Type: Spontaneous
  Country: US (occurrence: US)
  Receive Date: 20170111
  Receipt Date: 20170111
  Transmission Date: 20170428
  Serious: Yes (Hospitalization, Other)
  Sender: FDA-Public Use
  Company Number: US-RELYPSA-RLY2017000151

PATIENT
  Sex: Female

DRUGS (1)
  1. VELTASSA [Suspect]
     Active Substance: PATIROMER
     Indication: PRODUCT USED FOR UNKNOWN INDICATION
     Dosage: 16.8 G, UNKNOWN
     Route: 065
     Dates: start: 20160714, end: 201610

REACTIONS (4)
  - Dialysis [Unknown]
  - Hospitalisation [Unknown]
  - Spinal fusion surgery [Unknown]
  - Fall [Unknown]

NARRATIVE: CASE EVENT DATE: 2016
